FAERS Safety Report 6115295-6 (Version None)
Quarter: 2009Q1

REPORT INFORMATION
  Report Type: 
  Country: None (occurrence: None)
  Receive Date: 20090311
  Receipt Date: 20081106
  Transmission Date: 20090719
  Serious: Yes (Hospitalization, Other)
  Sender: FDA-Public Use
  Company Number: US200811001591

PATIENT
  Age: 69 Year
  Sex: Male

DRUGS (13)
  1. GEMZAR [Suspect]
     Indication: PANCREATIC CARCINOMA RECURRENT
     Dates: start: 20080812
  2. TARCEVA [Concomitant]
  3. CREON (AMYLASE, LIPASE, PANCREATIN, PROTEASE) [Concomitant]
  4. METOPROLOL TARTRATE [Concomitant]
  5. ZOCOR [Concomitant]
  6. METFORMIN HCL [Concomitant]
  7. ZOFRAN [Concomitant]
  8. PROTONIX [Concomitant]
  9. COLACE (DOCUSATE SODIUM) [Concomitant]
  10. ROCEPHIN [Concomitant]
  11. ZITHROMAX [Concomitant]
  12. XANAX [Concomitant]
  13. ALBUTEROL [Concomitant]

REACTIONS (5)
  - FATIGUE [None]
  - HAEMOGLOBIN DECREASED [None]
  - LUNG INFILTRATION [None]
  - MALIGNANT NEOPLASM PROGRESSION [None]
  - PYREXIA [None]
